FAERS Safety Report 11202161 (Version 2)
Quarter: 2015Q2

REPORT INFORMATION
  Report Type: Report from Study
  Country: EC (occurrence: EC)
  Receive Date: 20150619
  Receipt Date: 20150630
  Transmission Date: 20150821
  Serious: Yes (Hospitalization, Other)
  Sender: FDA-Public Use
  Company Number: PHHY2015EC017603

PATIENT
  Age: 51 Year
  Sex: Female
  Weight: 68 kg

DRUGS (4)
  1. GLIVEC [Suspect]
     Active Substance: IMATINIB MESYLATE
     Dosage: 400 MG, BID
     Route: 048
     Dates: start: 20071205
  2. GLIVEC [Suspect]
     Active Substance: IMATINIB MESYLATE
     Dosage: 800 MG, QD
     Route: 048
     Dates: start: 20140313, end: 20150409
  3. GLIVEC [Suspect]
     Active Substance: IMATINIB MESYLATE
     Indication: CHRONIC MYELOID LEUKAEMIA
     Dosage: 800 MG, QD
     Route: 048
     Dates: start: 20060101
  4. GLIVEC [Suspect]
     Active Substance: IMATINIB MESYLATE
     Dosage: 400 MG
     Route: 048
     Dates: start: 20080114, end: 20140312

REACTIONS (13)
  - Haemoglobin decreased [Not Recovered/Not Resolved]
  - Haematocrit decreased [Not Recovered/Not Resolved]
  - Malignant neoplasm progression [Unknown]
  - Drug resistance [Not Recovered/Not Resolved]
  - Nodule [Recovered/Resolved]
  - Thrombocytosis [Not Recovered/Not Resolved]
  - Skin disorder [Unknown]
  - Pyrexia [Recovered/Resolved]
  - Chronic myeloid leukaemia [Unknown]
  - Leukaemia recurrent [Not Recovered/Not Resolved]
  - Peripheral swelling [Unknown]
  - White blood cell count increased [Not Recovered/Not Resolved]
  - No therapeutic response [Unknown]

NARRATIVE: CASE EVENT DATE: 20141009
